FAERS Safety Report 5402058-X (Version None)
Quarter: 2007Q3

REPORT INFORMATION
  Report Type: 
  Country: None (occurrence: None)
  Receive Date: 20070727
  Receipt Date: 20070717
  Transmission Date: 20080115
  Serious: Yes (Death, Hospitalization)
  Sender: FDA-Public Use
  Company Number: 39167

PATIENT
  Age: 53 Year
  Sex: Male

DRUGS (1)
  1. CISPLATIN [Suspect]
     Indication: ADENOSQUAMOUS CELL LUNG CANCER
     Dosage: 75MG/M2 EVERY 21 DAYS/4 CYC

REACTIONS (7)
  - CARDIAC ARREST [None]
  - GASTROINTESTINAL NECROSIS [None]
  - GENERAL PHYSICAL HEALTH DETERIORATION [None]
  - HAEMATOCRIT DECREASED [None]
  - HAEMOGLOBIN DECREASED [None]
  - INTESTINAL ISCHAEMIA [None]
  - PNEUMATOSIS INTESTINALIS [None]
